FAERS Safety Report 4635294-0 (Version None)
Quarter: 2005Q2

REPORT INFORMATION
  Report Type: 
  Country: None (occurrence: None)
  Receive Date: 20050411
  Receipt Date: 20050330
  Transmission Date: 20051028
  Serious: Yes (Hospitalization)
  Sender: FDA-Public Use
  Company Number: HQWYE24101APR05

PATIENT
  Sex: 0

DRUGS (1)
  1. EFFEXOR XR [Suspect]
     Dosage: TRANSPLACENTAL
     Route: 064

REACTIONS (3)
  - DRUG EXPOSURE DURING PREGNANCY [None]
  - FEEDING PROBLEM IN NEWBORN [None]
  - HYPOTONIA NEONATAL [None]
